FAERS Safety Report 10668420 (Version 2)
Quarter: 2015Q1

REPORT INFORMATION
  Report Type: Spontaneous
  Country: JP (occurrence: JP)
  Receive Date: 20141222
  Receipt Date: 20150102
  Transmission Date: 20150720
  Serious: Yes (Hospitalization)
  Sender: FDA-Public Use
  Company Number: JP-SA-2014SA175723

PATIENT
  Age: 80 Year
  Sex: Male

DRUGS (5)
  1. DEXAMETHASONE. [Concomitant]
     Active Substance: DEXAMETHASONE
  2. DOCETAXEL. [Suspect]
     Active Substance: DOCETAXEL
     Indication: PROSTATE CANCER
     Dosage: 3RD AND 4TH CYCLE
     Route: 065
  3. ZOLEDRONIC ACID [Concomitant]
     Active Substance: ZOLEDRONIC ACID
     Indication: BONE PAIN
     Dates: start: 201302
  4. DOCETAXEL. [Suspect]
     Active Substance: DOCETAXEL
     Indication: PROSTATE CANCER
     Route: 065
  5. DOCETAXEL. [Suspect]
     Active Substance: DOCETAXEL
     Indication: PROSTATE CANCER
     Dosage: 5TH CYCLE
     Route: 065

REACTIONS (6)
  - Diarrhoea [Recovering/Resolving]
  - Pyrexia [Recovering/Resolving]
  - Vomiting [Recovering/Resolving]
  - Portal venous gas [Recovering/Resolving]
  - Pneumatosis intestinalis [Recovering/Resolving]
  - Abdominal pain lower [Recovering/Resolving]

NARRATIVE: CASE EVENT DATE: 2012
